FAERS Safety Report 14568428 (Version 1)
Quarter: 2018Q1

REPORT INFORMATION
  Report Type: Spontaneous
  Country: US (occurrence: US)
  Receive Date: 20180223
  Receipt Date: 20180223
  Transmission Date: 20180509
  Serious: Yes (Other)
  Sender: FDA-Public Use
  Company Number: US-OSMOTICA_PHARMACEUTICAL_US_LLC-POI0573201700069

PATIENT
  Age: 26 Year
  Sex: Male

DRUGS (3)
  1. RISPERDAL [Concomitant]
     Active Substance: RISPERIDONE
  2. ZOLOFT [Concomitant]
     Active Substance: SERTRALINE HYDROCHLORIDE
  3. METHYLPHENIDATE HYDROCHLORIDE EXTENDED-RELEASE TABLETS [Suspect]
     Active Substance: METHYLPHENIDATE HYDROCHLORIDE
     Indication: ATTENTION DEFICIT/HYPERACTIVITY DISORDER
     Dates: start: 20171126, end: 20171126

REACTIONS (3)
  - Dysphagia [Recovered/Resolved]
  - Pharyngeal oedema [Recovering/Resolving]
  - Removal of foreign body from throat [Recovered/Resolved]

NARRATIVE: CASE EVENT DATE: 20171126
